FAERS Safety Report 4886093-6 (Version None)
Quarter: 2006Q1

REPORT INFORMATION
  Report Type: 
  Country: None (occurrence: None)
  Receive Date: 20060120
  Receipt Date: 20060111
  Transmission Date: 20060701
  Serious: Yes (Hospitalization)
  Sender: FDA-Public Use
  Company Number: NL-ABBOTT-06P-114-0321711-00

PATIENT

DRUGS (9)
  1. KALETRA [Suspect]
     Indication: DRUG USE FOR UNKNOWN INDICATION
  2. LAMIVUDINE + ZIDOVUDINE [Concomitant]
     Indication: DRUG USE FOR UNKNOWN INDICATION
  3. NVP [Concomitant]
     Indication: DRUG USE FOR UNKNOWN INDICATION
  4. EFZ [Concomitant]
     Indication: DRUG USE FOR UNKNOWN INDICATION
  5. NUCONAZOL CREME [Concomitant]
     Indication: DRUG USE FOR UNKNOWN INDICATION
     Route: 061
     Dates: start: 20051212, end: 20051222
  6. SUMATRIPTAN SUCCINATE [Concomitant]
     Indication: DRUG USE FOR UNKNOWN INDICATION
     Dates: start: 20040706, end: 20040731
  7. DIAZEPAM [Concomitant]
     Indication: DRUG USE FOR UNKNOWN INDICATION
     Dates: start: 20040706, end: 20040731
  8. AC COD [Concomitant]
     Indication: DRUG USE FOR UNKNOWN INDICATION
     Dates: start: 20040706, end: 20040731
  9. HYDROCORTISONE [Concomitant]
     Indication: DRUG USE FOR UNKNOWN INDICATION
     Dates: start: 20041213, end: 20050130

REACTIONS (2)
  - HERPES ZOSTER [None]
  - VIRAL INFECTION [None]
